FAERS Safety Report 5248519-8 (Version None)
Quarter: 2007Q1

REPORT INFORMATION
  Report Type: 
  Country: None (occurrence: None)
  Receive Date: 20070222
  Receipt Date: 20070206
  Transmission Date: 20070707
  Serious: Yes (Disabling)
  Sender: FDA-Public Use
  Company Number: SPV1-2007-00739

PATIENT
  Age: 37 Year
  Sex: Male

DRUGS (2)
  1. PENTASA [Suspect]
     Indication: CROHN'S DISEASE
     Dosage: 2 G DAILY, ORAL
     Route: 048
     Dates: start: 20030721
  2. SULFASALAZINE [Suspect]
     Indication: CROHN'S DISEASE
     Dosage: 2000 MG DAILY, ORAL
     Route: 048
     Dates: start: 19950101, end: 20030721

REACTIONS (6)
  - INFERTILITY MALE [None]
  - SEMEN ABNORMAL [None]
  - SEMEN VOLUME DECREASED [None]
  - SPERM COUNT DECREASED [None]
  - SPERMATOZOA PROGRESSIVE MOTILITY DECREASED [None]
  - TERATOSPERMIA [None]
